FAERS Safety Report 7524950-2 (Version None)
Quarter: 2011Q2

REPORT INFORMATION
  Report Type: 
  Country: None (occurrence: None)
  Receive Date: 20110606
  Receipt Date: 20110524
  Transmission Date: 20111010
  Serious: Yes (Hospitalization, Other)
  Sender: FDA-Public Use
  Company Number: CA-ELI_LILLY_AND_COMPANY-CA201105006780

PATIENT
  Sex: Male

DRUGS (20)
  1. ZYPREXA ZYDIS [Suspect]
     Dosage: 5 MG, QD
  2. ZYPREXA [Suspect]
     Dosage: 15 MG, QD
  3. KEMADRIN [Concomitant]
  4. ZYPREXA [Suspect]
     Indication: BIPOLAR DISORDER
     Dosage: 5 MG, QD
  5. CLONAZEPAM [Concomitant]
  6. ZYPREXA [Suspect]
     Dosage: 10 MG, QD
  7. ZYPREXA ZYDIS [Suspect]
     Indication: BIPOLAR DISORDER
     Dosage: 15 MG, QD
  8. STELAZINE [Concomitant]
  9. NEURONTIN [Concomitant]
  10. ACETAMINOPHEN [Concomitant]
  11. ZYPREXA [Suspect]
     Dosage: 2.5 MG, PRN
  12. SEROQUEL [Concomitant]
  13. LIBRIUM [Concomitant]
  14. ZYPREXA [Suspect]
     Dosage: 20 MG, QD
  15. VALPROATE SODIUM [Concomitant]
  16. ATIVAN [Concomitant]
  17. ZYPREXA ZYDIS [Suspect]
     Dosage: 5 MG, BID
  18. LITHIUM CARBONATE [Concomitant]
  19. LOXAPIN [Concomitant]
  20. SERAX [Concomitant]

REACTIONS (19)
  - HEPATITIS [None]
  - ANAEMIA [None]
  - HEPATIC STEATOSIS [None]
  - OSTEOMYELITIS [None]
  - GASTROENTERITIS [None]
  - PANCREATITIS ACUTE [None]
  - HEPATIC ENZYME INCREASED [None]
  - PANCREATITIS CHRONIC [None]
  - CELLULITIS [None]
  - HYPOTENSION [None]
  - RHABDOMYOLYSIS [None]
  - HEPATOMEGALY [None]
  - PARKINSON'S DISEASE [None]
  - HYPERTENSION [None]
  - ACTIVITIES OF DAILY LIVING IMPAIRED [None]
  - FIBROSIS [None]
  - HEPATITIS ALCOHOLIC [None]
  - PANCREATITIS [None]
  - HAEMATURIA [None]
